FAERS Safety Report 6582031-9 (Version None)
Quarter: 2010Q1

REPORT INFORMATION
  Report Type: 
  Country: None (occurrence: None)
  Receive Date: 20100215
  Receipt Date: 20100204
  Transmission Date: 20100710
  Serious: Yes (Death)
  Sender: FDA-Public Use
  Company Number: JP-JNJFOC-20100206037

PATIENT
  Sex: Male
  Weight: 75 kg

DRUGS (9)
  1. CRAVIT [Suspect]
     Indication: LIVER ABSCESS
     Route: 048
  2. TIENAM [Suspect]
     Indication: LIVER ABSCESS
     Route: 041
  3. LASIX [Concomitant]
     Indication: HYPERTENSION
     Route: 048
  4. WARFARIN [Concomitant]
     Indication: CAROTID ARTERY STENOSIS
     Route: 048
  5. IMIDAPRIL [Concomitant]
     Indication: HYPERTENSION
     Route: 048
  6. MAGNESIUM OXIDE [Concomitant]
     Indication: CONSTIPATION
     Route: 048
  7. MIYA BM [Concomitant]
     Indication: CONSTIPATION
     Route: 048
  8. MYSLEE [Concomitant]
     Indication: INSOMNIA
     Route: 048
  9. MYOCOR [Concomitant]
     Indication: ACUTE CORONARY SYNDROME
     Route: 065

REACTIONS (1)
  - SUPERINFECTION [None]
